FAERS Safety Report 7197851-X (Version None)
Quarter: 2010Q4

REPORT INFORMATION
  Report Type: 
  Country: None (occurrence: None)
  Receive Date: 20101227
  Receipt Date: 20101223
  Transmission Date: 20110411
  Serious: No
  Sender: FDA-Public Use
  Company Number: CH-ROCHE-694747

PATIENT
  Sex: Female
  Weight: 3.5 kg

DRUGS (2)
  1. ROACUTAN [Suspect]
     Indication: ACNE
     Route: 064
     Dates: end: 20091231
  2. FEMINAC 35 [Suspect]
     Indication: CONTRACEPTION
     Route: 064

REACTIONS (2)
  - NO ADVERSE EVENT [None]
  - NORMAL NEWBORN [None]
